FAERS Safety Report 10230115 (Version 1)
Quarter: 2014Q2

REPORT INFORMATION
  Report Type: Spontaneous
  Country: US (occurrence: None)
  Receive Date: 20140610
  Receipt Date: 20140610
  Transmission Date: 20141212
  Serious: Yes (Hospitalization, Other)
  Sender: FDA-Public Use
  Company Number: None

PATIENT
  Age: 56 Year
  Sex: Female
  Weight: 72.58 kg

DRUGS (1)
  1. FOCALIN XR [Suspect]
     Indication: ATTENTION DEFICIT/HYPERACTIVITY DISORDER
     Dosage: 1 TWICE DAILY TAKEN BY MOUTH
     Route: 048
     Dates: start: 20140307, end: 20140608

REACTIONS (9)
  - Product colour issue [None]
  - Product substitution issue [None]
  - Fatigue [None]
  - Mental impairment [None]
  - Disturbance in attention [None]
  - Headache [None]
  - General physical health deterioration [None]
  - Asthenia [None]
  - Fatigue [None]
